FAERS Safety Report 6991377-1 (Version None)
Quarter: 2010Q3

REPORT INFORMATION
  Report Type: 
  Country: None (occurrence: None)
  Receive Date: 20100916
  Receipt Date: 20090622
  Transmission Date: 20110219
  Serious: No
  Sender: FDA-Public Use
  Company Number: US-WYE-H09286709

PATIENT
  Age: 85 Year
  Sex: Female
  Weight: 101.24 kg

DRUGS (4)
  1. ADVIL PM [Suspect]
     Indication: INSOMNIA
     Route: 048
     Dates: start: 20090301, end: 20090501
  2. ADVIL PM [Suspect]
     Dosage: TWO AT A TIME
     Route: 048
     Dates: start: 20090501
  3. NORVASC [Concomitant]
  4. ATENOLOL [Concomitant]

REACTIONS (2)
  - DRUG INEFFECTIVE [None]
  - NIGHTMARE [None]
